FAERS Safety Report 24361900 (Version 1)
Quarter: 2024Q3

REPORT INFORMATION
  Report Type: Spontaneous
  Country: CN (occurrence: CN)
  Receive Date: 20240925
  Receipt Date: 20240925
  Transmission Date: 20241017
  Serious: Yes (Life-Threatening, Other)
  Sender: Teyro Labs
  Company Number: CN-TEYRO-2024-TY-000625

PATIENT

DRUGS (11)
  1. TOPOTECAN [Suspect]
     Active Substance: TOPOTECAN HYDROCHLORIDE
     Indication: Neuroblastoma recurrent
     Dosage: ARM 1 PI EQUAL TO 24 H (LIGHT-AVOIDANCE) ON D3-D5
     Route: 041
  2. TOPOTECAN [Suspect]
     Active Substance: TOPOTECAN HYDROCHLORIDE
     Dosage: ARM 2 PI EQUAL TO 24 H (LIGHT-AVOIDANCE) ON D3-D5
     Route: 041
  3. CYCLOPHOSPHAMIDE [Suspect]
     Active Substance: CYCLOPHOSPHAMIDE
     Indication: Neuroblastoma recurrent
     Dosage: ARM 1 PI=3 H ON D3-D4
     Route: 041
  4. CYCLOPHOSPHAMIDE [Suspect]
     Active Substance: CYCLOPHOSPHAMIDE
     Dosage: IV DRIP, PI}1 H ON D3-D5
     Route: 041
  5. DOXORUBICIN [Suspect]
     Active Substance: DOXORUBICIN
     Indication: Neuroblastoma recurrent
     Dosage: IV DRIP, PI}3 H ON D5-D6
     Route: 041
  6. VINCRISTINE [Suspect]
     Active Substance: VINCRISTINE
     Indication: Neuroblastoma recurrent
     Dosage: PI=2HR
     Route: 041
  7. ETOPOSIDE [Suspect]
     Active Substance: ETOPOSIDE
     Indication: Neuroblastoma recurrent
     Dosage: IV DRIP, PI}4 H ON D6-D8
     Route: 041
  8. ARSENIC TRIOXIDE [Suspect]
     Active Substance: ARSENIC TRIOXIDE
     Indication: Neuroblastoma recurrent
     Dosage: P=8H
     Route: 041
  9. ARSENIC TRIOXIDE [Suspect]
     Active Substance: ARSENIC TRIOXIDE
     Dosage: P=8H
     Route: 041
  10. VINORELBINE [Suspect]
     Active Substance: VINORELBINE TARTRATE
     Indication: Neuroblastoma recurrent
     Dosage: DILUTION CONCENTRATION OF DILUTE MORE THAN1 MG/ML
     Route: 041
  11. ASCORBIC ACID [Concomitant]
     Active Substance: ASCORBIC ACID
     Dosage: 0.5-1
     Route: 065

REACTIONS (5)
  - Neoplasm progression [Unknown]
  - Myelosuppression [Unknown]
  - Nausea [Unknown]
  - Vomiting [Unknown]
  - Off label use [Unknown]
